FAERS Safety Report 4783668-X (Version None)
Quarter: 2005Q3

REPORT INFORMATION
  Report Type: 
  Country: None (occurrence: None)
  Receive Date: 20050928
  Receipt Date: 20050915
  Transmission Date: 20060218
  Serious: Yes (Death)
  Sender: FDA-Public Use
  Company Number: 2005118875

PATIENT
  Age: 71 Year
  Sex: Female

DRUGS (6)
  1. DELTASONE [Suspect]
     Indication: LYMPHOMA
     Dates: start: 20030101, end: 20030301
  2. ETOPOSIDE [Suspect]
     Indication: LYMPHOMA
     Dates: start: 20030401, end: 20030601
  3. VINCRISTINE [Suspect]
     Indication: LYMPHOMA
     Dates: start: 20030101, end: 20030301
  4. PIRARUBICIN (PIRARUBICIN [Suspect]
     Indication: LYMPHOMA
     Dates: start: 20030101, end: 20030301
  5. CYCLOPHOSPHAMIDE [Suspect]
     Indication: LYMPHOMA
     Dates: start: 20030101, end: 20030301
  6. RITUXIMAB (RITUXIMAB) [Suspect]
     Indication: LYMPHOMA
     Dates: end: 20030101

REACTIONS (4)
  - CONDITION AGGRAVATED [None]
  - DISSEMINATED INTRAVASCULAR COAGULATION [None]
  - PERITONITIS [None]
  - WHITE BLOOD CELL COUNT DECREASED [None]
